FAERS Safety Report 20668451 (Version 1)
Quarter: 2022Q2

REPORT INFORMATION
  Report Type: Spontaneous
  Country: US (occurrence: US)
  Receive Date: 20220404
  Receipt Date: 20220404
  Transmission Date: 20220720
  Serious: Yes (Other)
  Sender: FDA-Public Use
  Company Number: US-CELGENE-USA-20220202823

PATIENT
  Age: 12 Year
  Sex: Female
  Weight: 67.13 kg

DRUGS (2)
  1. REVLIMID [Suspect]
     Active Substance: LENALIDOMIDE
     Indication: Plasma cell myeloma
     Dosage: 20 MILLIGRAM
     Route: 048
     Dates: start: 202109
  2. REVLIMID [Suspect]
     Active Substance: LENALIDOMIDE
     Dosage: 25 MILLIGRAM
     Route: 048
     Dates: start: 20220120

REACTIONS (4)
  - Syncope [Not Recovered/Not Resolved]
  - Somnolence [Unknown]
  - Nausea [Unknown]
  - Urticaria [Unknown]

NARRATIVE: CASE EVENT DATE: 20220201
